FAERS Safety Report 20587691 (Version 1)
Quarter: 2022Q1

REPORT INFORMATION
  Report Type: Spontaneous
  Country: NL (occurrence: NL)
  Receive Date: 20220314
  Receipt Date: 20220314
  Transmission Date: 20220423
  Serious: Yes (Hospitalization)
  Sender: FDA-Public Use
  Company Number: None

PATIENT
  Age: 65 Year
  Sex: Female
  Weight: 55.5 kg

DRUGS (14)
  1. CISPLATIN [Suspect]
     Active Substance: CISPLATIN
     Indication: Mantle cell lymphoma
     Dosage: 160MG PER 3 WEEKS
     Dates: start: 20211208, end: 20211210
  2. PREDNISOLONE [Concomitant]
     Active Substance: PREDNISOLONE
     Dosage: STRENGTH: 12.5 MG/ML
  3. DEXAMETHASONE [Concomitant]
     Active Substance: DEXAMETHASONE
     Dosage: STRENGTH: 20 MG/ML
  4. RITUXIMAB [Concomitant]
     Active Substance: RITUXIMAB
     Dosage: STRENGTH: 10 MG/ML
  5. ONDANSETRON [Concomitant]
     Active Substance: ONDANSETRON
     Dosage: STRENGTH: 8 MG
  6. METOCLOPRAMIDE [Concomitant]
     Active Substance: METOCLOPRAMIDE
     Dosage: STRENGTH: 10 MG
  7. CYTARABINE [Concomitant]
     Active Substance: CYTARABINE
     Dosage: STRENGTH:100 MG/ML
  8. FUROSEMIDE [Concomitant]
     Active Substance: FUROSEMIDE
     Dosage: STRENGTH: 10 MG/ML
  9. CLEMASTINE [Concomitant]
     Active Substance: CLEMASTINE
     Dosage: STRENGTH: 1MG/ML
  10. SULFAMETHOXAZOLE\TRIMETHOPRIM [Concomitant]
     Active Substance: SULFAMETHOXAZOLE\TRIMETHOPRIM
     Dosage: STRENGTH:80/400 MG
  11. ACETAMINOPHEN [Concomitant]
     Active Substance: ACETAMINOPHEN
     Dosage: STRENGTH: 500 MG
  12. PEGFILGRASTIM [Concomitant]
     Active Substance: PEGFILGRASTIM
     Dosage: STRENGTH: 10 MG/ML
  13. APREPITANT [Concomitant]
     Active Substance: APREPITANT
     Dosage: STRENGTH: 125 MG
  14. CIPROFLOXACIN [Concomitant]
     Active Substance: CIPROFLOXACIN
     Dosage: STRENGTH: 250MG

REACTIONS (2)
  - Renal salt-wasting syndrome [Recovered/Resolved]
  - Off label use [Unknown]

NARRATIVE: CASE EVENT DATE: 20211214
